FAERS Safety Report 5815173-3 (Version None)
Quarter: 2008Q3

REPORT INFORMATION
  Report Type: 
  Country: None (occurrence: None)
  Receive Date: 20080718
  Receipt Date: 20080707
  Transmission Date: 20090109
  Serious: Yes (Death, Hospitalization)
  Sender: FDA-Public Use
  Company Number: CH-ROCHE-574979

PATIENT
  Age: 49 Year
  Sex: Male
  Weight: 92 kg

DRUGS (16)
  1. VALGANCICLOVIR HCL [Suspect]
     Dosage: INITIALLY.
     Route: 050
  2. VALGANCICLOVIR HCL [Suspect]
     Dosage: BEGINNING 48 HOURS AFTER LAST 900 MG DOSE. GIVEN IN A NASOGASTRIC TUBE AFTER DISSOLUTION.
     Route: 050
  3. MIDAZOLAM HCL [Suspect]
     Indication: DRUG USE FOR UNKNOWN INDICATION
     Route: 065
  4. HEPARIN SODIUM [Suspect]
     Indication: DRUG USE FOR UNKNOWN INDICATION
     Route: 065
  5. MYCOPHENOLATE MOFETIL [Suspect]
     Indication: DRUG USE FOR UNKNOWN INDICATION
     Route: 065
  6. NOREPINEPHRINE [Concomitant]
  7. FENTANYL [Concomitant]
  8. SUFENTANIL CITRATE [Concomitant]
  9. TACROLIMUS [Concomitant]
  10. METHYLPREDNISOLONE [Concomitant]
  11. VANCOMYCIN HCL [Concomitant]
  12. VORICONAZOLE [Concomitant]
  13. PIPERACILLIN AND TAZOBACTAM [Concomitant]
  14. INSULIN [Concomitant]
  15. ESOMEPRAZOLE MAGNESIUM [Concomitant]
  16. NEOSTIGMINE [Concomitant]

REACTIONS (3)
  - CARDIOGENIC SHOCK [None]
  - MULTI-ORGAN FAILURE [None]
  - SEPTIC SHOCK [None]
